FAERS Safety Report 7402916-0 (Version None)
Quarter: 2011Q2

REPORT INFORMATION
  Report Type: 
  Country: None (occurrence: None)
  Receive Date: 20110408
  Receipt Date: 20110401
  Transmission Date: 20111010
  Serious: Yes (Hospitalization, Other)
  Sender: FDA-Public Use
  Company Number: US-US-EMD SERONO, INC.-7051698

PATIENT
  Sex: Female

DRUGS (4)
  1. ALBUTEROL [Concomitant]
     Indication: CHRONIC OBSTRUCTIVE PULMONARY DISEASE
  2. UNSPECIFIED BLOOD PRESSURE MEDICATION [Concomitant]
     Indication: HYPERTENSION
  3. OXYGEN THERAPY [Concomitant]
     Indication: CHRONIC OBSTRUCTIVE PULMONARY DISEASE
  4. REBIF [Suspect]
     Indication: MULTIPLE SCLEROSIS
     Dates: start: 20101006

REACTIONS (6)
  - CENTRAL NERVOUS SYSTEM LESION [None]
  - HEADACHE [None]
  - ECONOMIC PROBLEM [None]
  - HIP ARTHROPLASTY [None]
  - INFLUENZA [None]
  - HYPOAESTHESIA FACIAL [None]
